FAERS Safety Report 13747869 (Version 1)
Quarter: 2017Q3

REPORT INFORMATION
  Report Type: Spontaneous
  Country: US (occurrence: US)
  Receive Date: 20170713
  Receipt Date: 20170713
  Transmission Date: 20171127
  Serious: Yes (Other)
  Sender: FDA-Public Use
  Company Number: US-BAXTER-2017BAX027568

PATIENT
  Age: 36 Year
  Sex: Female

DRUGS (23)
  1. FENTANYL. [Suspect]
     Active Substance: FENTANYL
     Dosage: CASE 3
     Route: 065
  2. RISPERDAL [Concomitant]
     Active Substance: RISPERIDONE
     Indication: MENTAL DISORDER
  3. FENTANYL. [Suspect]
     Active Substance: FENTANYL
     Dosage: CASE 2
     Route: 065
  4. SEVOFLURANE, USP [Suspect]
     Active Substance: SEVOFLURANE
     Route: 055
  5. SEVOFLURANE, USP [Suspect]
     Active Substance: SEVOFLURANE
     Route: 055
  6. FENTANYL. [Suspect]
     Active Substance: FENTANYL
     Dosage: CASE 6
     Route: 065
  7. FENTANYL. [Suspect]
     Active Substance: FENTANYL
     Route: 065
  8. PROPOFOL. [Concomitant]
     Active Substance: PROPOFOL
     Route: 042
  9. HYDROMORPHONE [Concomitant]
     Active Substance: HYDROMORPHONE
     Indication: PRODUCT USED FOR UNKNOWN INDICATION
     Route: 042
  10. RISPERDAL [Concomitant]
     Active Substance: RISPERIDONE
     Indication: DEPRESSION
     Route: 048
  11. SEVOFLURANE, USP [Suspect]
     Active Substance: SEVOFLURANE
     Indication: MAINTENANCE OF ANAESTHESIA
     Route: 055
  12. FENTANYL. [Suspect]
     Active Substance: FENTANYL
     Indication: PRODUCT USED FOR UNKNOWN INDICATION
     Dosage: CASE 1
     Route: 065
  13. FENTANYL. [Suspect]
     Active Substance: FENTANYL
     Dosage: CASE 4
     Route: 065
  14. FENTANYL. [Suspect]
     Active Substance: FENTANYL
     Dosage: CASE 5
     Route: 065
  15. PROPOFOL. [Concomitant]
     Active Substance: PROPOFOL
     Route: 042
  16. PROPOFOL. [Concomitant]
     Active Substance: PROPOFOL
     Route: 042
  17. FENTANYL. [Suspect]
     Active Substance: FENTANYL
     Dosage: CASE 7
     Route: 065
  18. NEOSTIGMINE [Concomitant]
     Active Substance: NEOSTIGMINE
     Indication: HYPOTONIA
     Route: 065
  19. PROPOFOL. [Concomitant]
     Active Substance: PROPOFOL
     Route: 042
  20. SEVOFLURANE, USP [Suspect]
     Active Substance: SEVOFLURANE
     Route: 055
  21. GLYCOPYRROLATE. [Concomitant]
     Active Substance: GLYCOPYRROLATE
     Indication: HYPOTONIA
     Route: 065
  22. PROPOFOL. [Concomitant]
     Active Substance: PROPOFOL
     Indication: MAINTENANCE OF ANAESTHESIA
     Route: 042
  23. PROPOFOL. [Concomitant]
     Active Substance: PROPOFOL
     Route: 042

REACTIONS (1)
  - Delirium [Recovered/Resolved]
